FAERS Safety Report 21424316 (Version 1)
Quarter: 2022Q4

REPORT INFORMATION
  Report Type: Spontaneous
  Country: CH (occurrence: CH)
  Receive Date: 20221007
  Receipt Date: 20221007
  Transmission Date: 20230113
  Serious: Yes (Hospitalization, Other)
  Sender: FDA-Public Use
  Company Number: CH-009507513-2210CHE001122

PATIENT
  Age: 68 Year
  Sex: Male

DRUGS (3)
  1. TEMODAL [Suspect]
     Active Substance: TEMOZOLOMIDE
     Indication: Malignant melanoma stage IV
     Dosage: 1ST CYCLE
     Dates: start: 20220715, end: 20220719
  2. TEMODAL [Suspect]
     Active Substance: TEMOZOLOMIDE
     Dosage: 2ND CYCLE
     Dates: start: 20220812, end: 20220816
  3. LYRICA [Concomitant]
     Active Substance: PREGABALIN
     Indication: Polyneuropathy

REACTIONS (8)
  - Malignant neoplasm progression [Unknown]
  - Hypothyroidism [Unknown]
  - Pyrexia [Unknown]
  - Vertigo positional [Unknown]
  - Bone marrow oedema [Unknown]
  - Joint impingement [Unknown]
  - Vertebral foraminal stenosis [Unknown]
  - Product use in unapproved indication [Unknown]

NARRATIVE: CASE EVENT DATE: 20220715
